FAERS Safety Report 5422620-8 (Version None)
Quarter: 2007Q3

REPORT INFORMATION
  Report Type: 
  Country: None (occurrence: None)
  Receive Date: 20070820
  Receipt Date: 20070809
  Transmission Date: 20080115
  Serious: Yes (Other)
  Sender: FDA-Public Use
  Company Number: 2007SP016243

PATIENT
  Age: 36 Year
  Sex: Female

DRUGS (2)
  1. PEG-INTRON [Suspect]
     Indication: HEPATITIS C
     Dates: start: 20061006, end: 20070622
  2. RIBAVIRIN [Suspect]
     Indication: HEPATITIS C
     Dosage: PO
     Route: 048
     Dates: start: 20061006, end: 20070622

REACTIONS (7)
  - ABDOMINAL DISTENSION [None]
  - FAMILY STRESS [None]
  - HAEMATOCHEZIA [None]
  - HAEMOPTYSIS [None]
  - MOUTH ULCERATION [None]
  - SKIN DISCOLOURATION [None]
  - WEIGHT DECREASED [None]
